FAERS Safety Report 7714466-2 (Version None)
Quarter: 2011Q3

REPORT INFORMATION
  Report Type: 
  Country: None (occurrence: None)
  Receive Date: 20110829
  Receipt Date: 20110817
  Transmission Date: 20111222
  Serious: Yes (Hospitalization, Other)
  Sender: FDA-Public Use
  Company Number: JP-RANBAXY-2011RR-44162

PATIENT
  Sex: Female

DRUGS (80)
  1. TAXOTERE [Suspect]
     Dosage: 97 MG, UNK
     Route: 065
     Dates: start: 20100705, end: 20100705
  2. CYCLOPHOSPHAMIDE [Suspect]
     Indication: BREAST CANCER
     Dosage: 972 MG, UNK
     Route: 065
     Dates: start: 20100614, end: 20100614
  3. CYCLOPHOSPHAMIDE [Suspect]
     Dosage: 810 MG, UNK
     Route: 065
     Dates: start: 20100823, end: 20100823
  4. LEVOTHYROXINE SODIUM [Suspect]
     Dosage: UNK
     Route: 065
     Dates: start: 20100802, end: 20100802
  5. ALFAROL [Suspect]
     Indication: PRODUCT USED FOR UNKNOWN INDICATION
     Dosage: UNK
     Route: 065
     Dates: end: 20100621
  6. LEVOFLOXACIN [Suspect]
     Dosage: UNK
     Route: 065
     Dates: start: 20100726, end: 20100728
  7. ASPARA POTASSIUM [Suspect]
     Indication: PRODUCT USED FOR UNKNOWN INDICATION
     Dosage: UNK
     Route: 065
     Dates: end: 20100615
  8. LOXONIN [Suspect]
     Dosage: UNK
     Route: 065
     Dates: start: 20100705, end: 20100709
  9. LOXONIN [Suspect]
     Dosage: UNK
     Route: 065
     Dates: start: 20100830, end: 20100830
  10. LEVOGLUTAMIDE [Suspect]
     Dosage: UNK
     Route: 065
     Dates: start: 20100802, end: 20100806
  11. NICARDIPINE HCL [Suspect]
     Indication: PRODUCT USED FOR UNKNOWN INDICATION
     Dosage: UNK
     Route: 065
     Dates: start: 20100622, end: 20100628
  12. NEUTROGIN [Suspect]
     Dosage: 100 UG, UNK
     Route: 058
     Dates: start: 20100809, end: 20100810
  13. NEUTROGIN [Suspect]
     Dosage: 100 UG, UNK
     Route: 058
     Dates: start: 20100830, end: 20100831
  14. TAXOTERE [Suspect]
     Indication: BREAST CANCER
     Dosage: 121 MG, UNK
     Route: 065
     Dates: start: 20100614, end: 20100614
  15. ALFAROL [Suspect]
     Dosage: UNK
     Route: 065
     Dates: start: 20100802, end: 20100802
  16. ZOFRAN [Suspect]
     Indication: PRODUCT USED FOR UNKNOWN INDICATION
     Dosage: UNK
     Route: 065
     Dates: start: 20100705, end: 20100709
  17. TRASTUZUMAB [Suspect]
     Dosage: 126 UG, 1/WEEK
     Route: 065
     Dates: start: 20100621, end: 20100830
  18. CALCIUM LACTATE [Suspect]
     Dosage: UNK
     Route: 065
     Dates: start: 20100622, end: 20100628
  19. LOXONIN [Suspect]
     Dosage: UNK
     Route: 065
     Dates: start: 20100621, end: 20100625
  20. TAXOTERE [Suspect]
     Dosage: 97 MG, UNK
     Route: 065
     Dates: start: 20100802, end: 20100802
  21. TAXOTERE [Suspect]
     Dosage: 97 MG, UNK
     Route: 065
     Dates: start: 20100823, end: 20100823
  22. CYCLOPHOSPHAMIDE [Suspect]
     Dosage: 810 MG, UNK
     Route: 065
     Dates: start: 20100802, end: 20100802
  23. ALFAROL [Suspect]
     Dosage: UNK
     Route: 065
     Dates: start: 20100803, end: 20100830
  24. BISOPROLOL FUMARATE [Suspect]
     Indication: PRODUCT USED FOR UNKNOWN INDICATION
     Dosage: UNK
     Route: 065
     Dates: end: 20100614
  25. BIO THREE [Suspect]
     Dosage: UNK
     Route: 065
     Dates: start: 20100809, end: 20100815
  26. BIO THREE [Suspect]
     Dosage: UNK
     Route: 065
     Dates: start: 20100823, end: 20100830
  27. SERENAL [Suspect]
     Dosage: UNK
     Route: 065
     Dates: start: 20100622, end: 20100628
  28. ASPARA POTASSIUM [Suspect]
     Dosage: UNK
     Dates: start: 20100616, end: 20100621
  29. ASPARA POTASSIUM [Suspect]
     Dosage: UNK
     Route: 065
     Dates: start: 20100622, end: 20100622
  30. DECADRON [Suspect]
     Dosage: UNK
     Route: 065
     Dates: start: 20100802, end: 20100803
  31. LOXONIN [Suspect]
     Dosage: UNK
     Route: 065
     Dates: start: 20100809, end: 20100827
  32. LEVOGLUTAMIDE [Suspect]
     Dosage: UNK
     Route: 065
     Dates: start: 20100712, end: 20100716
  33. CYCLOPHOSPHAMIDE [Suspect]
     Dosage: 810 MG, UNK
     Route: 065
     Dates: start: 20100705, end: 20100705
  34. BISOPROLOL FUMARATE [Suspect]
     Dosage: UNK
     Route: 065
     Dates: start: 20100629, end: 20100711
  35. ZOFRAN [Suspect]
     Dosage: UNK
     Route: 065
     Dates: start: 20100802, end: 20100806
  36. MEROPENEM [Suspect]
     Indication: PRODUCT USED FOR UNKNOWN INDICATION
     Dosage: 01 G, UNK
     Route: 065
     Dates: start: 20100622, end: 20100624
  37. CALCIUM LACTATE [Suspect]
     Indication: PRODUCT USED FOR UNKNOWN INDICATION
     Dosage: UNK
     Route: 065
     Dates: end: 20100621
  38. SERENAL [Suspect]
     Indication: PRODUCT USED FOR UNKNOWN INDICATION
     Dosage: UNK
     Route: 065
     Dates: end: 20100621
  39. LOXONIN [Suspect]
     Dosage: UNK
     Route: 065
     Dates: start: 20100726, end: 20100730
  40. LEVOGLUTAMIDE [Suspect]
     Indication: PRODUCT USED FOR UNKNOWN INDICATION
     Dosage: UNK
     Route: 065
     Dates: end: 20100618
  41. LEVOGLUTAMIDE [Suspect]
     Dosage: UNK
     Route: 065
     Dates: start: 20100726, end: 20100730
  42. NEUTROGIN [Suspect]
     Indication: FEBRILE NEUTROPENIA
     Dosage: 100 UG, UNK
     Route: 058
     Dates: start: 20100621, end: 20100622
  43. NEUTROGIN [Suspect]
     Dosage: 100 UG, UNK
     Route: 058
     Dates: start: 20100712, end: 20100713
  44. LEVOTHYROXINE SODIUM [Suspect]
     Dosage: UNK
     Route: 065
     Dates: start: 20100623, end: 20100628
  45. LEVOTHYROXINE SODIUM [Suspect]
     Dosage: UNK
     Route: 065
     Dates: start: 20100602, end: 20100801
  46. ALFAROL [Suspect]
     Dosage: UNK
     Route: 065
     Dates: start: 20100629, end: 20100801
  47. BIO THREE [Suspect]
     Dosage: UNK
     Route: 065
     Dates: start: 20100726, end: 20100801
  48. SERENAL [Suspect]
     Dosage: UNK
     Route: 065
     Dates: start: 20100629, end: 20100716
  49. ASPARA POTASSIUM [Suspect]
     Dosage: UNK
     Route: 065
     Dates: start: 20100629, end: 20100704
  50. LOXONIN [Suspect]
     Indication: PRODUCT USED FOR UNKNOWN INDICATION
     Dosage: UNK
     Route: 065
     Dates: end: 20100618
  51. LOXONIN [Suspect]
     Dosage: UNK
     Route: 065
     Dates: start: 20100802, end: 20100806
  52. VOLTAREN [Suspect]
     Indication: PRODUCT USED FOR UNKNOWN INDICATION
     Dosage: UNK
     Route: 065
     Dates: end: 20100614
  53. NEO-MERCAZOLE TAB [Suspect]
     Indication: PRODUCT USED FOR UNKNOWN INDICATION
     Dosage: UNK
     Route: 065
     Dates: end: 20100622
  54. LEVOTHYROXINE SODIUM [Suspect]
     Indication: PRODUCT USED FOR UNKNOWN INDICATION
     Dosage: UNK
     Route: 065
     Dates: end: 20100621
  55. LEVOTHYROXINE SODIUM [Suspect]
     Dosage: UNK
     Route: 065
     Dates: start: 20100622, end: 20100622
  56. LEVOTHYROXINE SODIUM [Suspect]
     Dosage: UNK
     Route: 065
     Dates: start: 20100803, end: 20100830
  57. ALFAROL [Suspect]
     Dosage: UNK
     Route: 065
     Dates: start: 20100622, end: 20100628
  58. BISOPROLOL FUMARATE [Suspect]
     Dosage: UNK
     Route: 065
     Dates: start: 20100615, end: 20100621
  59. LEVOFLOXACIN [Suspect]
     Indication: PRODUCT USED FOR UNKNOWN INDICATION
     Dosage: UNK
     Route: 065
     Dates: end: 20100615
  60. DECADRON [Suspect]
     Dosage: UNK
     Route: 065
     Dates: start: 20100705, end: 20100706
  61. DECADRON [Suspect]
     Dosage: UNK
     Route: 065
     Dates: start: 20100823, end: 20100824
  62. LOXONIN [Suspect]
     Dosage: UNK
     Route: 065
     Dates: start: 20100712, end: 20100716
  63. GUAIAZULENE [Suspect]
     Indication: PRODUCT USED FOR UNKNOWN INDICATION
     Dosage: UNK
     Route: 065
     Dates: start: 20100624, end: 20100624
  64. BISOPROLOL FUMARATE [Suspect]
     Dosage: UNK
     Route: 065
     Dates: start: 20100622, end: 20100628
  65. BIO THREE [Suspect]
     Indication: PRODUCT USED FOR UNKNOWN INDICATION
     Dosage: UNK
     Route: 065
     Dates: start: 20100621, end: 20100711
  66. BIO THREE [Suspect]
     Dosage: UNK
     Route: 065
     Dates: start: 20100712, end: 20100718
  67. BIO THREE [Suspect]
     Dosage: UNK
     Route: 065
     Dates: start: 20100802, end: 20100808
  68. TRASTUZUMAB [Suspect]
     Indication: BREAST CANCER
     Dosage: 253 UG, 1/WEEK
     Route: 065
     Dates: start: 20100614, end: 20100614
  69. DECADRON [Suspect]
     Indication: PRODUCT USED FOR UNKNOWN INDICATION
     Dosage: UNK
     Route: 065
     Dates: end: 20100615
  70. LEVOGLUTAMIDE [Suspect]
     Dosage: UNK
     Route: 065
     Dates: start: 20100705, end: 20100709
  71. LEVOGLUTAMIDE [Suspect]
     Dosage: UNK
     Route: 065
     Dates: start: 20100809, end: 20100827
  72. LEVOGLUTAMIDE [Suspect]
     Dosage: UNK
     Route: 065
     Dates: start: 20100830, end: 20100830
  73. NATEGLINIDE [Suspect]
     Indication: PRODUCT USED FOR UNKNOWN INDICATION
     Dosage: UNK
     Route: 065
     Dates: end: 20100715
  74. GABAPENTIN [Suspect]
     Indication: PRODUCT USED FOR UNKNOWN INDICATION
     Dosage: UNK
     Route: 065
     Dates: start: 20100816, end: 20100822
  75. GABAPENTIN [Suspect]
     Dosage: UNK
     Route: 065
     Dates: start: 20100830, end: 20100830
  76. LEVOFLOXACIN [Suspect]
     Dosage: UNK
     Route: 065
     Dates: start: 20100830, end: 20100830
  77. LOPERAMIDE HCL [Suspect]
     Indication: PRODUCT USED FOR UNKNOWN INDICATION
     Dosage: UNK
     Route: 065
     Dates: start: 20100624, end: 20100628
  78. SERENAL [Suspect]
     Dosage: UNK
     Route: 065
     Dates: start: 20100802, end: 20100822
  79. HACHIAZULE [Suspect]
     Indication: PRODUCT USED FOR UNKNOWN INDICATION
     Dosage: UNK
     Route: 065
     Dates: end: 20100614
  80. LEVOGLUTAMIDE [Suspect]
     Dosage: UNK
     Route: 065
     Dates: start: 20100621, end: 20100625

REACTIONS (16)
  - C-REACTIVE PROTEIN INCREASED [None]
  - MALAISE [None]
  - RALES [None]
  - WHITE BLOOD CELL COUNT DECREASED [None]
  - BLOOD LACTATE DEHYDROGENASE INCREASED [None]
  - RHEUMATOID ARTHRITIS [None]
  - ARTHRALGIA [None]
  - OROPHARYNGEAL PAIN [None]
  - BRONCHITIS [None]
  - FEBRILE NEUTROPENIA [None]
  - COUGH [None]
  - MUSCULOSKELETAL STIFFNESS [None]
  - PYREXIA [None]
  - NEUTROPHIL COUNT DECREASED [None]
  - INTERSTITIAL LUNG DISEASE [None]
  - DYSPNOEA [None]
